FAERS Safety Report 10378699 (Version 1)
Quarter: 2014Q3

REPORT INFORMATION
  Report Type: Spontaneous
  Country: HR (occurrence: HR)
  Receive Date: 20140812
  Receipt Date: 20140812
  Transmission Date: 20150326
  Serious: Yes (Life-Threatening, Hospitalization, Disabling)
  Sender: FDA-Public Use
  Company Number: HR-TEVA-499318ISR

PATIENT
  Age: 75 Year
  Sex: Male
  Weight: 104 kg

DRUGS (4)
  1. DIAZEPAM JADRAN [Concomitant]
     Active Substance: DIAZEPAM
     Indication: VASCULAR DEMENTIA
     Route: 048
     Dates: start: 20131129
  2. MEMANTIN PLIVA [Suspect]
     Active Substance: MEMANTINE
     Indication: VASCULAR DEMENTIA
     Route: 048
     Dates: start: 20140225, end: 20140227
  3. MEMANTIN PLIVA [Suspect]
     Active Substance: MEMANTINE
     Indication: VASCULAR DEMENTIA
     Route: 048
     Dates: start: 20140228, end: 20140309
  4. TRANDOLAPRIL GENERA [Concomitant]
     Indication: ESSENTIAL HYPERTENSION
     Route: 048
     Dates: start: 20130617

REACTIONS (8)
  - Gait disturbance [Recovered/Resolved with Sequelae]
  - Coordination abnormal [Recovered/Resolved with Sequelae]
  - Syncope [Recovered/Resolved with Sequelae]
  - Ataxia [Recovered/Resolved with Sequelae]
  - Fall [Recovered/Resolved with Sequelae]
  - Off label use [Recovered/Resolved with Sequelae]
  - Head injury [Recovered/Resolved with Sequelae]
  - Medication error [Recovered/Resolved with Sequelae]

NARRATIVE: CASE EVENT DATE: 20140227
